FAERS Safety Report 22595106 (Version 1)
Quarter: 2023Q2

REPORT INFORMATION
  Report Type: Spontaneous
  Country: FR (occurrence: FR)
  Receive Date: 20230613
  Receipt Date: 20230613
  Transmission Date: 20230722
  Serious: Yes (Other)
  Sender: FDA-Public Use
  Company Number: FR-SUN PHARMACEUTICAL INDUSTRIES LTD-2023RR-393897

PATIENT
  Age: 26 Year
  Sex: Male

DRUGS (7)
  1. PREGABALIN [Suspect]
     Active Substance: PREGABALIN
     Indication: Product used for unknown indication
     Dosage: UP TO 600 MG/D (450 MG/D PRESCRIBED)
     Route: 048
  2. DIAZEPAM [Suspect]
     Active Substance: DIAZEPAM
     Indication: Product used for unknown indication
     Dosage: 60 MG/J
     Route: 048
  3. HEROIN [Suspect]
     Active Substance: DIAMORPHINE
     Indication: Product used for unknown indication
     Dosage: UNK
     Route: 045
  4. COCAINE [Suspect]
     Active Substance: COCAINE
     Indication: Product used for unknown indication
     Dosage: 0.5 TO 5 G /D (VARIABLE ACCORDING TO FINANCIAL CAPACITIES)
     Route: 055
  5. COCAINE [Suspect]
     Active Substance: COCAINE
     Dosage: 0.5 TO 5 G /D (VARIABLE ACCORDING TO FINANCIAL CAPACITIES)
     Route: 045
  6. ALCOHOL [Suspect]
     Active Substance: ALCOHOL
     Indication: Product used for unknown indication
     Dosage: 5 L OF BEER AT 8.6 PER DAY (10 BEERS OF 50 CL) + ALCOHOL AT 40 (WHISKEY, VODKA) VARIABLE IN THE EVEN
     Route: 048
  7. METHADONE [Suspect]
     Active Substance: METHADONE HYDROCHLORIDE
     Indication: Product used for unknown indication
     Dosage: 160 MG/DAY
     Route: 048
     Dates: start: 2018

REACTIONS (1)
  - Drug dependence [Not Recovered/Not Resolved]
